FAERS Safety Report 4329883-0 (Version None)
Quarter: 2004Q1

REPORT INFORMATION
  Report Type: 
  Country: None (occurrence: None)
  Receive Date: 20040329
  Receipt Date: 20040319
  Transmission Date: 20041129
  Serious: Yes (Hospitalization, Other)
  Sender: FDA-Public Use
  Company Number: GBR-2004-0000952

PATIENT
  Sex: Male

DRUGS (2)
  1. OXYCONTIN [Suspect]
     Indication: PAIN
     Dosage: 20 MG, DAILY, ORAL
     Route: 048
  2. CLONAZEPAM [Suspect]
     Dosage: ORAL
     Route: 048

REACTIONS (2)
  - CONFUSIONAL STATE [None]
  - FALL [None]
